FAERS Safety Report 9432235 (Version 2)
Quarter: 2013Q3

REPORT INFORMATION
  Report Type: Report from Study
  Country: CA (occurrence: CA)
  Receive Date: 20130731
  Receipt Date: 20130802
  Transmission Date: 20140515
  Serious: Yes (Other)
  Sender: FDA-Public Use
  Company Number: PHHY2013CA081161

PATIENT
  Sex: Female

DRUGS (5)
  1. CLOZARIL [Suspect]
     Indication: SCHIZOPHRENIA
     Dosage: 200 MG, DAILY
     Route: 048
     Dates: start: 20121002
  2. LITHIUM [Concomitant]
     Dosage: UNK UKN, UNK
  3. LAMICTAL [Concomitant]
     Dosage: UNK UKN, UNK
  4. ATIVAN [Concomitant]
     Dosage: UNK UKN, UNK
  5. CELEXA [Concomitant]
     Dosage: UNK UKN, UNK

REACTIONS (1)
  - Abscess [Recovered/Resolved]
